FAERS Safety Report 25907996 (Version 1)
Quarter: 2025Q4

REPORT INFORMATION
  Report Type: Spontaneous
  Country: US (occurrence: US)
  Receive Date: 20251010
  Receipt Date: 20251010
  Transmission Date: 20260118
  Serious: No
  Sender: Kenvue
  Company Number: US-KENVUE-20250907194

PATIENT
  Sex: Female

DRUGS (1)
  1. PEPCID COMPLETE [Suspect]
     Active Substance: CALCIUM CARBONATE\FAMOTIDINE\MAGNESIUM HYDROXIDE
     Indication: Dyspepsia
     Dosage: 1 DOSAGE FORMP; 2-4 TIMES DAILY FOR 2 WEEKS, THEN STOPPED FOR 2 DAYS, AND THEN 2-4 TIMES A DAY FOR 2
     Route: 065
     Dates: start: 20250827

REACTIONS (4)
  - Nausea [Recovering/Resolving]
  - Dry mouth [Recovering/Resolving]
  - Overdose [Unknown]
  - Inappropriate schedule of product administration [Unknown]

NARRATIVE: CASE EVENT DATE: 20250827
